FAERS Safety Report 5225701-7 (Version None)
Quarter: 2007Q1

REPORT INFORMATION
  Report Type: 
  Country: None (occurrence: None)
  Receive Date: 20070129
  Receipt Date: 20070111
  Transmission Date: 20070707
  Serious: Yes (Hospitalization)
  Sender: FDA-Public Use
  Company Number: 235429

PATIENT
  Age: 66 Year
  Sex: Male
  Weight: 78.6 kg

DRUGS (9)
  1. AVASTIN [Suspect]
     Indication: COLON CANCER
     Dosage: 590 MG, Q3W, INTRAVENOUS
     Route: 042
     Dates: start: 20061215
  2. CAPECITABINE(CAPECITABINE) [Suspect]
     Indication: COLON CANCER
     Dosage: 2500 MG, BID, ORAL
     Route: 048
     Dates: start: 20061215
  3. VALSARTAN [Suspect]
     Indication: HYPERTENSION
     Dosage: 80 MG, ORAL
     Route: 048
  4. AMLODIPINE BESYLATE [Suspect]
     Indication: HYPERTENSION
     Dosage: 10 MG, QD, ORAL
     Route: 048
  5. DOXAZOSIN MESYLATE [Suspect]
     Indication: DRUG USE FOR UNKNOWN INDICATION
     Dosage: 8 MG, QD, ORAL
     Route: 048
  6. ATENOLOL [Suspect]
     Indication: HYPERTENSION
     Dosage: 100 MG, QD, ORAL
     Route: 048
  7. ASPIRIN [Suspect]
     Indication: HYPERTENSION
     Dosage: 75 MG, ORAL
     Route: 048
  8. SIMVASTATIN [Suspect]
     Indication: HYPERCHOLESTEROLAEMIA
     Dosage: 20 MG, ORAL
     Route: 048
  9. PERINDOPRIL ERBUMINE [Suspect]
     Indication: HYPERTENSION
     Dosage: 8 MG, ORAL
     Route: 048

REACTIONS (3)
  - DYSPNOEA [None]
  - HAEMOPTYSIS [None]
  - RENAL FAILURE [None]
